FAERS Safety Report 8992325 (Version 16)
Quarter: 2015Q2

REPORT INFORMATION
  Report Type: Report from Study
  Country: CA (occurrence: CA)
  Receive Date: 20121231
  Receipt Date: 20150603
  Transmission Date: 20150821
  Serious: Yes (Hospitalization, Other)
  Sender: FDA-Public Use
  Company Number: PHHY2012CA120967

PATIENT
  Age: 78 Year
  Sex: Female

DRUGS (3)
  1. ASPIRIN. [Concomitant]
     Active Substance: ASPIRIN
     Indication: PRODUCT USED FOR UNKNOWN INDICATION
     Route: 065
  2. TASIGNA [Suspect]
     Active Substance: NILOTINIB
     Dosage: 400 MG, BID
     Route: 048
  3. TASIGNA [Suspect]
     Active Substance: NILOTINIB
     Indication: CHRONIC MYELOID LEUKAEMIA
     Dosage: 600 MG, QD (400 MG QAM AND 200 MG QPM)
     Route: 048
     Dates: start: 200901

REACTIONS (32)
  - Sneezing [Unknown]
  - Malaise [Unknown]
  - Abdominal pain lower [Unknown]
  - Impaired healing [Unknown]
  - Cardiac disorder [Not Recovered/Not Resolved]
  - Hyperkeratosis [Recovering/Resolving]
  - Diarrhoea [Unknown]
  - Herpes zoster [Unknown]
  - Aphonia [Unknown]
  - Alopecia [Unknown]
  - Localised infection [Recovered/Resolved]
  - Cough [Unknown]
  - Pyrexia [Unknown]
  - Fall [Unknown]
  - Full blood count abnormal [Unknown]
  - Gait disturbance [Unknown]
  - Weight decreased [Unknown]
  - Nasopharyngitis [Unknown]
  - Arthralgia [Unknown]
  - Pruritus [Recovered/Resolved]
  - Oedema peripheral [Unknown]
  - Nephrolithiasis [Unknown]
  - Productive cough [Unknown]
  - White blood cell count decreased [Unknown]
  - Peripheral swelling [Unknown]
  - Dyspnoea [Unknown]
  - Dry skin [Recovered/Resolved]
  - Constipation [Unknown]
  - Cholelithiasis [Unknown]
  - Cataract [Unknown]
  - Skin exfoliation [Recovered/Resolved]
  - Dizziness [Unknown]

NARRATIVE: CASE EVENT DATE: 201211
